FAERS Safety Report 15392878 (Version 1)
Quarter: 2018Q3

REPORT INFORMATION
  Report Type: Spontaneous
  Country: FI (occurrence: FI)
  Receive Date: 20180917
  Receipt Date: 20180917
  Transmission Date: 20181010
  Serious: Yes (Disabling)
  Sender: FDA-Public Use
  Company Number: FI-TEVA-2018-FI-955083

PATIENT
  Age: 80 Year
  Sex: Male

DRUGS (16)
  1. LAXOBERON [Concomitant]
     Active Substance: SODIUM PICOSULFATE
     Dosage: 10,MG,DAILY
     Route: 048
  2. LOVASTATIN. [Concomitant]
     Active Substance: LOVASTATIN
     Dosage: 40,MG,DAILY
     Route: 048
  3. AERIUS [Concomitant]
     Active Substance: DESLORATADINE
     Dosage: 5,MG,DAILY
     Route: 048
  4. PREDNISON [Concomitant]
     Active Substance: PREDNISONE
     Dosage: 10,MG,DAILY
     Route: 048
  5. STILNOCT [Concomitant]
     Active Substance: ZOLPIDEM TARTRATE
     Dosage: 20,MG,DAILY
     Route: 048
  6. EMCONCOR [Concomitant]
     Active Substance: BISOPROLOL FUMARATE
     Dosage: 5,MG,DAILY
     Route: 048
  7. EXPROS [Concomitant]
     Active Substance: TAMSULOSIN HYDROCHLORIDE
     Dosage: 0.4,MG,DAILY
     Route: 048
  8. CORDARONE [Concomitant]
     Active Substance: AMIODARONE HYDROCHLORIDE
     Dosage: 100,MG,DAILY
     Route: 048
  9. FELODIPINE. [Concomitant]
     Active Substance: FELODIPINE
     Dosage: 5,MG,DAILY
     Route: 048
  10. ENALAPRIL [Concomitant]
     Active Substance: ENALAPRIL
     Dosage: 20,MG,DAILY
     Route: 048
  11. GEFINA [Concomitant]
     Dosage: 5,MG,DAILY
     Route: 048
  12. PANACOD [Concomitant]
     Active Substance: ACETAMINOPHEN\CODEINE PHOSPHATE
     Dosage: 6,DF,DAILY
     Route: 048
  13. GALANTAMINE. [Concomitant]
     Active Substance: GALANTAMINE
     Dosage: 24,MG,DAILY
     Route: 048
  14. GABAPENTIN ACTAVIS [Suspect]
     Active Substance: GABAPENTIN
     Indication: PAIN
     Dosage: 1.2,G,DAILY
     Route: 048
     Dates: start: 201709, end: 201802
  15. XARELTO [Concomitant]
     Active Substance: RIVAROXABAN
     Dosage: 20,MG,DAILY
     Route: 048
  16. FURESIS [Concomitant]
     Active Substance: FUROSEMIDE
     Dosage: 40,MG,DAILY
     Route: 048

REACTIONS (8)
  - Contusion [Recovered/Resolved with Sequelae]
  - Dizziness [Recovered/Resolved with Sequelae]
  - Fall [Recovered/Resolved with Sequelae]
  - Dysgraphia [Recovered/Resolved with Sequelae]
  - Memory impairment [Recovered/Resolved with Sequelae]
  - Disturbance in attention [Recovered/Resolved with Sequelae]
  - Suicidal ideation [Recovered/Resolved with Sequelae]
  - Balance disorder [Recovered/Resolved with Sequelae]

NARRATIVE: CASE EVENT DATE: 20180130
